FAERS Safety Report 5822038-X (Version None)
Quarter: 2008Q3

REPORT INFORMATION
  Report Type: 
  Country: None (occurrence: None)
  Receive Date: 20080725
  Receipt Date: 20080717
  Transmission Date: 20090109
  Serious: Yes (Other)
  Sender: FDA-Public Use
  Company Number: GB-RANBAXY-2008RR-16466

PATIENT

DRUGS (7)
  1. AMITRIPTYLINE HCL [Suspect]
     Indication: DEPRESSION
     Dosage: 50 MG, UNK
  2. PRAVASTATIN SODIUM 10 MG TABLETS [Suspect]
     Indication: HYPERCHOLESTEROLAEMIA
     Dosage: 20 MG, UNK
  3. ASPIRIN [Concomitant]
  4. LEVOTHYROXINE SODIUM [Concomitant]
  5. ATENOLOL [Concomitant]
  6. ARTHROTEC [Concomitant]
  7. HYDROCORTISONE [Concomitant]
     Route: 042

REACTIONS (2)
  - COLITIS [None]
  - DRUG INTERACTION [None]
